FAERS Safety Report 4477050-2 (Version None)
Quarter: 2004Q4

REPORT INFORMATION
  Report Type: 
  Country: None (occurrence: None)
  Receive Date: 20041018
  Receipt Date: 20041014
  Transmission Date: 20050328
  Serious: Yes (Life-Threatening)
  Sender: FDA-Public Use
  Company Number: CA-BRISTOL-MYERS SQUIBB COMPANY-12732145

PATIENT
  Age: 60 Year
  Sex: Female

DRUGS (8)
  1. CYCLOPHOSPHAMIDE [Suspect]
     Indication: CHRONIC LYMPHOCYTIC LEUKAEMIA
     Dosage: CY 1: 28-JAN-02 (437 MG); DAYS 5, 6, AND 7
     Route: 042
     Dates: start: 20020227, end: 20020227
  2. FLUDARABINE PHOSPHATE [Suspect]
     Indication: CHRONIC LYMPHOCYTIC LEUKAEMIA
     Dosage: CY 1: 28-JAN-02 (44 MG); DAYS 5, 6, AND 7
     Route: 042
     Dates: start: 20020227, end: 20020227
  3. GENASENSE [Suspect]
     Indication: CHRONIC LYMPHOCYTIC LEUKAEMIA
     Dosage: THERAPY DATES: 24-JAN AND 28-FEB-2002; DAYS 1 THRU 7
     Route: 042
     Dates: start: 20020228, end: 20020228
  4. ACYCLOVIR [Concomitant]
  5. TRIMETHOPRIM-SULFAMETHOXAZOLE [Concomitant]
  6. ATENOLOL [Concomitant]
  7. PREMARIN [Concomitant]
  8. TRAZODONE HCL [Concomitant]

REACTIONS (1)
  - IDIOPATHIC THROMBOCYTOPENIC PURPURA [None]
